FAERS Safety Report 10750894 (Version 1)
Quarter: 2015Q1

REPORT INFORMATION
  Report Type: Spontaneous
  Country: US (occurrence: US)
  Receive Date: 20150130
  Receipt Date: 20150130
  Transmission Date: 20150721
  Serious: Yes (Other)
  Sender: FDA-Public Use
  Company Number: US-DRREDDYS-USA/USA/15/0045693

PATIENT
  Sex: Male

DRUGS (1)
  1. ZENATANE [Suspect]
     Active Substance: ISOTRETINOIN
     Indication: ACNE
     Route: 065
     Dates: start: 20141117

REACTIONS (4)
  - Stress [Unknown]
  - Product quality issue [Unknown]
  - Condition aggravated [Unknown]
  - Drug ineffective [Unknown]
